FAERS Safety Report 24745888 (Version 5)
Quarter: 2025Q1

REPORT INFORMATION
  Report Type: Report from Study
  Country: IT (occurrence: IT)
  Receive Date: 20241218
  Receipt Date: 20250321
  Transmission Date: 20250408
  Serious: Yes (Life-Threatening, Other)
  Sender: BRISTOL-MYERS SQUIBB COMPANY
  Company Number: IT-BRISTOL-MYERS SQUIBB COMPANY-2024-193701

PATIENT
  Age: 79 Year
  Sex: Male
  Weight: 75 kg

DRUGS (9)
  1. NIVOLUMAB [Suspect]
     Active Substance: NIVOLUMAB
     Indication: Non-small cell lung cancer
     Dosage: EV
     Dates: start: 20241025, end: 20241115
  2. IPILIMUMAB [Suspect]
     Active Substance: IPILIMUMAB
     Indication: Non-small cell lung cancer
     Dosage: EV
     Dates: start: 20241025, end: 20241025
  3. IPILIMUMAB [Suspect]
     Active Substance: IPILIMUMAB
     Dosage: EV
  4. DIETARY SUPPLEMENT [Concomitant]
     Active Substance: DIETARY SUPPLEMENT
     Indication: Hypercholesterolaemia
     Dates: start: 20110101
  5. ESOMEPRAZOLE [Concomitant]
     Active Substance: ESOMEPRAZOLE
     Indication: Gastrooesophageal reflux disease
     Dates: start: 20230101
  6. DOBETIN TOTALE [CYANOCOBALAMIN;PYRIDOXINE HYDROCHLORIDE;THIAMINE HYDRO [Concomitant]
     Indication: Premedication
     Dosage: DOBETIN TOTALE 1000 IM 5F +5F
     Route: 030
     Dates: start: 20241014
  7. DEXAMETHASONE [Concomitant]
     Active Substance: DEXAMETHASONE
     Indication: Premedication
     Dates: start: 20241024, end: 20241024
  8. RAMIPRIL [Concomitant]
     Active Substance: RAMIPRIL
     Indication: Hypertension
     Dates: start: 20050101
  9. MYCOSTATIN [Concomitant]
     Active Substance: NYSTATIN
     Indication: Product used for unknown indication

REACTIONS (7)
  - Immune-mediated hepatitis [Unknown]
  - Immune-mediated myocarditis [Unknown]
  - Off label use [Unknown]
  - Immune-mediated myasthenia gravis [Unknown]
  - Stomatitis [Recovered/Resolved]
  - Asthenia [Unknown]
  - Constipation [Not Recovered/Not Resolved]

NARRATIVE: CASE EVENT DATE: 20241027
